FAERS Safety Report 11128839 (Version 1)
Quarter: 2015Q2

REPORT INFORMATION
  Report Type: Spontaneous
  Country: US (occurrence: None)
  Receive Date: 20150520
  Receipt Date: 20150520
  Transmission Date: 20150821
  Serious: Yes (Disabling, Other)
  Sender: FDA-Public Use
  Company Number: None

PATIENT
  Age: 58 Year
  Sex: Female
  Weight: 79.38 kg

DRUGS (3)
  1. TYLENOL [Concomitant]
     Active Substance: ACETAMINOPHEN
  2. BENICAR [Suspect]
     Active Substance: OLMESARTAN MEDOXOMIL
     Indication: BLOOD PRESSURE
     Dosage: 1 YEAR, 1, ONCE DAILY, TAKEN BY MOUTH
     Route: 048
  3. ADVIL [Concomitant]
     Active Substance: IBUPROFEN

REACTIONS (5)
  - Decreased activity [None]
  - Muscular weakness [None]
  - Heart rate irregular [None]
  - Dysstasia [None]
  - Pain [None]

NARRATIVE: CASE EVENT DATE: 20150301
